FAERS Safety Report 6260697-0 (Version None)
Quarter: 2009Q3

REPORT INFORMATION
  Report Type: 
  Country: None (occurrence: None)
  Receive Date: 20090708
  Receipt Date: 20090622
  Transmission Date: 20100115
  Serious: Yes (Other)
  Sender: FDA-Public Use
  Company Number: SE-GENENTECH-286101

PATIENT

DRUGS (7)
  1. RITUXIMAB [Suspect]
     Indication: RENAL TRANSPLANT
     Dosage: 375 MG/M2, UNK
     Route: 065
  2. VALGANCICLOVIR HCL [Suspect]
     Indication: RENAL TRANSPLANT
     Route: 065
  3. MYCOPHENOLATE MOFETIL [Suspect]
     Indication: RENAL TRANSPLANT
     Route: 065
  4. TACROLIMUS [Suspect]
     Indication: RENAL TRANSPLANT
     Route: 065
  5. PREDNISOLONE [Suspect]
     Indication: RENAL TRANSPLANT
     Route: 065
  6. VALACYCLOVIR HCL [Suspect]
     Indication: RENAL TRANSPLANT
     Route: 065
  7. AZATHIOPRINE [Suspect]
     Indication: RENAL TRANSPLANT
     Route: 065

REACTIONS (2)
  - POLYOMAVIRUS-ASSOCIATED NEPHROPATHY [None]
  - SEPSIS [None]
